FAERS Safety Report 19941039 (Version 2)
Quarter: 2024Q3

REPORT INFORMATION
  Report Type: Report from Study
  Country: EG (occurrence: EG)
  Receive Date: 20211012
  Receipt Date: 20240903
  Transmission Date: 20241017
  Serious: No
  Sender: ROCHE
  Company Number: EG-ROCHE-2932141

PATIENT
  Age: 27 Year
  Sex: Female
  Weight: 85.0 kg

DRUGS (13)
  1. OCRELIZUMAB [Suspect]
     Active Substance: OCRELIZUMAB
     Indication: Relapsing-remitting multiple sclerosis
     Route: 042
     Dates: start: 20200216
  2. OCRELIZUMAB [Suspect]
     Active Substance: OCRELIZUMAB
     Route: 042
     Dates: start: 20210308, end: 20210308
  3. OCRELIZUMAB [Suspect]
     Active Substance: OCRELIZUMAB
     Route: 042
     Dates: start: 20210925, end: 20210925
  4. OCRELIZUMAB [Suspect]
     Active Substance: OCRELIZUMAB
     Route: 042
     Dates: start: 20210925, end: 20210925
  5. OCRELIZUMAB [Suspect]
     Active Substance: OCRELIZUMAB
     Route: 042
     Dates: start: 20220424, end: 20220424
  6. OCRELIZUMAB [Suspect]
     Active Substance: OCRELIZUMAB
     Route: 042
     Dates: start: 20221130, end: 20221130
  7. BONE CARE [Concomitant]
     Active Substance: ATRACTYLODES LANCEA ROOT
     Dosage: 1 CAPSULE
     Route: 048
     Dates: start: 20180215, end: 20220207
  8. INFEX (EGYPT) [Concomitant]
     Dosage: 1 TAB
     Route: 048
  9. NEUROTON [CYANOCOBALAMIN;FOLIC ACID;PYRIDOXINE HYDROCHLORIDE;RIBOFLAVI [Concomitant]
     Dosage: 1 U (UNIT)
     Route: 048
  10. ALFACALCIDOL [Concomitant]
     Active Substance: ALFACALCIDOL
     Route: 048
  11. BENFOTIAMINE\CYANOCOBALAMIN\PYRIDOXINE HYDROCHLORIDE [Concomitant]
     Active Substance: BENFOTIAMINE\CYANOCOBALAMIN\PYRIDOXINE HYDROCHLORIDE
     Route: 048
  12. PREDNISOLONE [Concomitant]
     Active Substance: PREDNISOLONE
     Dosage: 1 TAB
     Route: 048
     Dates: start: 20210514, end: 20210528
  13. BETAHISTINE [Concomitant]
     Active Substance: BETAHISTINE
     Dates: start: 20210615, end: 20210622

REACTIONS (1)
  - Influenza [Recovered/Resolved]

NARRATIVE: CASE EVENT DATE: 20210615
